FAERS Safety Report 6922670-6 (Version None)
Quarter: 2010Q3

REPORT INFORMATION
  Report Type: 
  Country: None (occurrence: None)
  Receive Date: 20100813
  Receipt Date: 20100803
  Transmission Date: 20110219
  Serious: Yes (Hospitalization, Other)
  Sender: FDA-Public Use
  Company Number: PHFR2010GB00813

PATIENT
  Sex: Female

DRUGS (5)
  1. CLOZARIL [Suspect]
     Indication: SCHIZOPHRENIA
     Dosage: 550 MG
     Route: 048
     Dates: start: 20090220
  2. CLONAZEPAM [Concomitant]
     Dosage: 3 MG
     Route: 048
  3. CITALOPRAM [Concomitant]
     Dosage: 10 MG
     Route: 048
  4. QUETIAPINE [Concomitant]
     Dosage: 200 MG
     Route: 048
  5. HYOSCINE [Concomitant]
     Dosage: 300 UG
     Route: 048

REACTIONS (2)
  - STRESS URINARY INCONTINENCE [None]
  - VAGINAL OPERATION [None]
